FAERS Safety Report 8828585 (Version 2)
Quarter: 2012Q4

REPORT INFORMATION
  Report Type: Report from Study
  Country: AT (occurrence: AT)
  Receive Date: 20121005
  Receipt Date: 20121011
  Transmission Date: 20130627
  Serious: Yes (Hospitalization)
  Sender: FDA-Public Use
  Company Number: AT-AMGEN-AUTCT2012063052

PATIENT
  Age: 30 Year
  Sex: Male

DRUGS (2)
  1. ROMIPLOSTIM [Suspect]
     Indication: IDIOPATHIC THROMBOCYTOPENIC PURPURA
     Dosage: 1 mug, qwk
     Route: 058
     Dates: start: 20100831
  2. DIAZEPAM [Concomitant]
     Dosage: UNK
     Route: 048

REACTIONS (2)
  - Influenza [Unknown]
  - Nasopharyngitis [Recovered/Resolved with Sequelae]
